FAERS Safety Report 20129793 (Version 1)
Quarter: 2021Q4

REPORT INFORMATION
  Report Type: Spontaneous
  Country: US (occurrence: None)
  Receive Date: 20211129
  Receipt Date: 20211129
  Transmission Date: 20220303
  Serious: Yes (Other)
  Sender: FDA-Public Use
  Company Number: None

PATIENT
  Age: 69 Year
  Sex: Female
  Weight: 65.7 kg

DRUGS (11)
  1. VERZENIO [Suspect]
     Active Substance: ABEMACICLIB
     Indication: Breast cancer female
     Dosage: OTHER FREQUENCY : BIDX21 DAYS, 7OFF;?
     Route: 048
     Dates: start: 20210928
  2. LORAZEPAM [Concomitant]
     Active Substance: LORAZEPAM
  3. VITAMINS [Concomitant]
     Active Substance: VITAMINS
  4. OLANZAPINE [Concomitant]
     Active Substance: OLANZAPINE
  5. ONDANSETRON [Concomitant]
     Active Substance: ONDANSETRON
  6. PRIMATENE MIST 0.125MG/ACT [Concomitant]
  7. VENTOLIN HFA 108MCG [Concomitant]
  8. CAPECITABINE [Concomitant]
     Active Substance: CAPECITABINE
  9. LEVETIRACETAM [Concomitant]
     Active Substance: LEVETIRACETAM
  10. ZOLEDRONIC ACID 4MG/5ML [Concomitant]
  11. TRASTUZUMAB [Concomitant]
     Active Substance: TRASTUZUMAB

REACTIONS (1)
  - Disease progression [None]

NARRATIVE: CASE EVENT DATE: 20211129
